FAERS Safety Report 24628940 (Version 1)
Quarter: 2024Q4

REPORT INFORMATION
  Report Type: Spontaneous
  Country: US (occurrence: US)
  Receive Date: 20241118
  Receipt Date: 20241118
  Transmission Date: 20250115
  Serious: Yes (Death, Other)
  Sender: BAXTER
  Company Number: US-BAXTER-2024BAX027770

PATIENT
  Age: 26 Day
  Weight: 3 kg

DRUGS (1)
  1. HEPARIN SODIUM [Suspect]
     Active Substance: HEPARIN SODIUM
     Dosage: UNSPECIFIED DOSE AND FREQUENCY VIA HEPARIN YD IN TO ACCESS LINE
     Route: 065

REACTIONS (2)
  - Death [Fatal]
  - Incorrect dose administered [Unknown]

NARRATIVE: CASE EVENT DATE: 20240913
